FAERS Safety Report 5763832-3 (Version None)
Quarter: 2008Q2

REPORT INFORMATION
  Report Type: 
  Country: None (occurrence: None)
  Receive Date: 20080606
  Receipt Date: 20080606
  Transmission Date: 20081010
  Serious: Yes (Other)
  Sender: FDA-Public Use
  Company Number: None

PATIENT
  Age: 5 Year
  Sex: Male
  Weight: 21 kg

DRUGS (6)
  1. SINGULAIR [Suspect]
     Indication: AGGRESSION
     Dosage: 5 MG DAILY PO
     Route: 048
     Dates: start: 20051101, end: 20080515
  2. SINGULAIR [Suspect]
     Indication: DEPRESSED MOOD
     Dosage: 5 MG DAILY PO
     Route: 048
     Dates: start: 20051101, end: 20080515
  3. SINGULAIR [Suspect]
     Indication: DEPRESSION
     Dosage: 5 MG DAILY PO
     Route: 048
     Dates: start: 20051101, end: 20080515
  4. SINGULAIR [Suspect]
     Indication: DRUG USE FOR UNKNOWN INDICATION
     Dosage: 5 MG DAILY PO
     Route: 048
     Dates: start: 20051101, end: 20080515
  5. SINGULAIR [Suspect]
     Indication: MOOD ALTERED
     Dosage: 5 MG DAILY PO
     Route: 048
     Dates: start: 20051101, end: 20080515
  6. SINGULAIR [Suspect]
     Indication: NIGHTMARE
     Dosage: 5 MG DAILY PO
     Route: 048
     Dates: start: 20051101, end: 20080515

REACTIONS (8)
  - ABNORMAL BEHAVIOUR [None]
  - AGGRESSION [None]
  - DEPRESSED MOOD [None]
  - INTENTIONAL SELF-INJURY [None]
  - MOOD ALTERED [None]
  - NIGHTMARE [None]
  - PHARMACEUTICAL PRODUCT COMPLAINT [None]
  - SUICIDAL IDEATION [None]
